FAERS Safety Report 6401023-3 (Version None)
Quarter: 2009Q4

REPORT INFORMATION
  Report Type: 
  Country: None (occurrence: None)
  Receive Date: 20091013
  Receipt Date: 20091013
  Transmission Date: 20100525
  Serious: Yes (Hospitalization)
  Sender: FDA-Public Use
  Company Number: None

PATIENT
  Sex: Female
  Weight: 45.5 kg

DRUGS (5)
  1. METHOTREXATE [Suspect]
     Dosage: 15 MG
  2. VINCRISTINE SULFATE [Suspect]
     Dosage: 2 MG
  3. CYCLOPHOSPHAMIDE [Suspect]
     Dosage: 1430 MG
  4. CYTARABINE [Suspect]
     Dosage: 110 MG
  5. MERCAPTOPURINE [Suspect]
     Dosage: 85.7 MG

REACTIONS (10)
  - ANAEMIA [None]
  - ANION GAP INCREASED [None]
  - BACTERIAL TEST POSITIVE [None]
  - BLOOD POTASSIUM DECREASED [None]
  - CLOSTRIDIAL INFECTION [None]
  - ELECTROLYTE IMBALANCE [None]
  - INFECTION [None]
  - THERAPEUTIC AGENT TOXICITY [None]
  - THROMBOCYTOPENIA [None]
  - VOMITING [None]
